FAERS Safety Report 11770672 (Version 2)
Quarter: 2016Q1

REPORT INFORMATION
  Report Type: Spontaneous
  Country: IT (occurrence: IT)
  Receive Date: 20151123
  Receipt Date: 20160126
  Transmission Date: 20160525
  Serious: Yes (Death, Hospitalization, Other)
  Sender: FDA-Public Use
  Company Number: IT-GILEAD-2015-0183576

PATIENT
  Age: 59 Year
  Sex: Male
  Weight: 113 kg

DRUGS (8)
  1. HARVONI [Suspect]
     Active Substance: LEDIPASVIR\SOFOSBUVIR
     Indication: CHRONIC HEPATITIS C
     Dosage: 1 DF, QD
     Route: 048
     Dates: start: 20151009
  2. INDERAL [Concomitant]
     Active Substance: PROPRANOLOL HYDROCHLORIDE
     Dosage: 40 MG, UNK
     Route: 048
     Dates: start: 20150924
  3. PANTOPRAZOL [Concomitant]
     Active Substance: PANTOPRAZOLE SODIUM
     Dosage: 40 MG, UNK
     Route: 048
  4. KANRENOL [Concomitant]
     Active Substance: CANRENOATE POTASSIUM
     Indication: ASCITES
     Dosage: 3 DF, UNK
     Route: 048
  5. RIBAVIRINA SANDOZ [Suspect]
     Active Substance: RIBAVIRIN
     Indication: CHRONIC HEPATITIS C
     Dosage: 800 MG, QD
     Route: 048
     Dates: start: 20151009
  6. LACTULOSE. [Concomitant]
     Active Substance: LACTULOSE
     Route: 048
  7. OXYCONTIN [Concomitant]
     Active Substance: OXYCODONE HYDROCHLORIDE
     Indication: PAIN
     Dosage: 100 MG, UNK
     Route: 048
  8. LASIX [Concomitant]
     Active Substance: FUROSEMIDE
     Indication: ASCITES
     Dosage: 3 DF, UNK
     Route: 048

REACTIONS (1)
  - Hepatorenal syndrome [Fatal]

NARRATIVE: CASE EVENT DATE: 20151102
